FAERS Safety Report 26043054 (Version 1)
Quarter: 2025Q4

REPORT INFORMATION
  Report Type: Spontaneous
  Country: US (occurrence: US)
  Receive Date: 20251113
  Receipt Date: 20251113
  Transmission Date: 20260118
  Serious: No
  Sender: ANI
  Company Number: US-ANIPHARMA-2025-US-048733

PATIENT
  Age: 45 Year
  Sex: Female
  Weight: 156.49 kg

DRUGS (11)
  1. CORTICOTROPIN [Suspect]
     Active Substance: CORTICOTROPIN
     Indication: Gout
     Dosage: 40 UNITS FOUR TIMES A WEEK
     Route: 058
     Dates: start: 20250819
  2. hydrocholarthiazide [Concomitant]
  3. TRAMADOL [Concomitant]
     Active Substance: TRAMADOL
  4. MAGNESIUM [Concomitant]
     Active Substance: MAGNESIUM
  5. AMITRIPTYLINE HYDROCHLORIDE [Concomitant]
     Active Substance: AMITRIPTYLINE HYDROCHLORIDE
  6. ALLOPURINOL [Concomitant]
     Active Substance: ALLOPURINOL
  7. ROSUVASTATIN CALCIUM [Concomitant]
     Active Substance: ROSUVASTATIN CALCIUM
  8. VITAMIN D [Concomitant]
     Active Substance: VITAMIN D NOS
  9. ESCITALOPRAM OXALATE [Concomitant]
     Active Substance: ESCITALOPRAM OXALATE
  10. METHOCARBAMOL [Concomitant]
     Active Substance: METHOCARBAMOL
  11. OZEMPIC [Concomitant]
     Active Substance: SEMAGLUTIDE

REACTIONS (3)
  - Dehydration [Unknown]
  - Renal disorder [Unknown]
  - Contraindicated product administered [Not Recovered/Not Resolved]

NARRATIVE: CASE EVENT DATE: 20250929
